FAERS Safety Report 24466327 (Version 1)
Quarter: 2024Q4

REPORT INFORMATION
  Report Type: Report from Study
  Country: US (occurrence: US)
  Receive Date: 20241018
  Receipt Date: 20241018
  Transmission Date: 20250115
  Serious: No
  Sender: ROCHE
  Company Number: US-ROCHE-3539086

PATIENT
  Age: 64 Year
  Sex: Male
  Weight: 136.08 kg

DRUGS (5)
  1. XOLAIR [Suspect]
     Active Substance: OMALIZUMAB
     Indication: Idiopathic urticaria
     Dosage: 1 SHOT IN EACH ARM
     Route: 030
  2. XOLAIR [Suspect]
     Active Substance: OMALIZUMAB
     Route: 058
  3. BENADRYL [Concomitant]
     Active Substance: DIPHENHYDRAMINE HYDROCHLORIDE
  4. HYDROXYZINE [Concomitant]
     Active Substance: HYDROXYZINE HYDROCHLORIDE
  5. PREDNISONE [Concomitant]
     Active Substance: PREDNISONE

REACTIONS (3)
  - Off label use [Unknown]
  - Off label use [Unknown]
  - Urticaria [Recovered/Resolved]
